FAERS Safety Report 11902415 (Version 4)
Quarter: 2016Q1

REPORT INFORMATION
  Report Type: Report from Study
  Country: US (occurrence: US)
  Receive Date: 20160108
  Receipt Date: 20160111
  Transmission Date: 20160526
  Serious: No
  Sender: FDA-Public Use
  Company Number: US-ABBVIE-15P-163-1442509-00

PATIENT
  Sex: Female

DRUGS (1)
  1. VIEKIRA PAK [Suspect]
     Active Substance: DASABUVIR\OMBITASVIR\PARITAPREVIR\RITONAVIR
     Indication: HEPATITIS C
     Dosage: 2 PINK 1 BEIGE IN AM, 1 BEIGE PM
     Route: 048
     Dates: start: 20150706

REACTIONS (6)
  - Pruritus [Unknown]
  - Abdominal distension [Unknown]
  - Fatigue [Unknown]
  - Decreased appetite [Unknown]
  - Dyspnoea exertional [Unknown]
  - Insomnia [Unknown]
